FAERS Safety Report 20466777 (Version 2)
Quarter: 2022Q1

REPORT INFORMATION
  Report Type: Spontaneous
  Country: US (occurrence: US)
  Receive Date: 20220214
  Receipt Date: 20220224
  Transmission Date: 20220423
  Serious: Yes (Life-Threatening, Hospitalization, Other)
  Sender: FDA-Public Use
  Company Number: US-MLMSERVICE-20220127-3343359-1

PATIENT
  Age: 30 Year
  Sex: Male

DRUGS (4)
  1. LOPERAMIDE [Suspect]
     Active Substance: LOPERAMIDE
     Indication: Diarrhoea
     Dosage: 20 MILLIGRAM, ONCE A DAY
     Route: 048
  2. LOPERAMIDE [Suspect]
     Active Substance: LOPERAMIDE
     Dosage: 40 MILLIGRAM, ONCE A DAY (DAY OF ADMISSION)
     Route: 048
  3. BUPRENORPHINE [Concomitant]
     Active Substance: BUPRENORPHINE
     Indication: Product used for unknown indication
     Dosage: UNK
     Route: 065
  4. FENTANYL [Concomitant]
     Active Substance: FENTANYL
     Indication: Product used for unknown indication
     Dosage: UNK
     Route: 065

REACTIONS (15)
  - Bradyarrhythmia [Unknown]
  - Electrocardiogram T wave alternans [Recovered/Resolved]
  - Electrocardiogram QRS complex prolonged [Recovering/Resolving]
  - Ventricular tachycardia [Unknown]
  - Hypokalaemia [Recovered/Resolved]
  - Bundle branch block left [Unknown]
  - Congestive cardiomyopathy [Unknown]
  - Long QT syndrome [Recovered/Resolved]
  - Torsade de pointes [Recovered/Resolved]
  - Overdose [Unknown]
  - Renal impairment [Recovered/Resolved]
  - Syncope [Unknown]
  - Drug abuse [Unknown]
  - Dizziness [Unknown]
  - Hyperhidrosis [Unknown]
